FAERS Safety Report 10200152 (Version 1)
Quarter: 2014Q2

REPORT INFORMATION
  Report Type: Spontaneous
  Country: IT (occurrence: IT)
  Receive Date: 20140527
  Receipt Date: 20140527
  Transmission Date: 20141212
  Serious: Yes (Hospitalization)
  Sender: FDA-Public Use
  Company Number: IT-MYLANLABS-2014S1011564

PATIENT
  Age: 67 Year
  Sex: Male

DRUGS (5)
  1. ENALAPRIL MALEATE [Suspect]
     Indication: HYPERTENSION
     Dosage: 10 MG DAILY
     Route: 048
     Dates: start: 20140401, end: 20140402
  2. SINVACOR [Concomitant]
     Indication: PRODUCT USED FOR UNKNOWN INDICATION
     Dosage: 1 DF
  3. DELTACORTENE [Concomitant]
     Indication: PRODUCT USED FOR UNKNOWN INDICATION
     Dosage: 1 DF
     Route: 048
  4. BISOPROLOL HEMIFUMARATE [Concomitant]
     Indication: PRODUCT USED FOR UNKNOWN INDICATION
     Dosage: 2.5 MG
     Route: 048
  5. VINORELBINE DITARTRATE [Concomitant]
     Indication: LUNG ADENOCARCINOMA
     Dosage: 25 MG/M2
     Route: 042
     Dates: start: 20140103, end: 20140328

REACTIONS (5)
  - Hyperhidrosis [Recovered/Resolved]
  - Hypotension [Recovered/Resolved]
  - Presyncope [Recovered/Resolved]
  - Vertigo [Recovered/Resolved]
  - Tachyarrhythmia [Recovered/Resolved]
